FAERS Safety Report 13420943 (Version 2)
Quarter: 2017Q2

REPORT INFORMATION
  Report Type: Spontaneous
  Country: US (occurrence: US)
  Receive Date: 20170410
  Receipt Date: 20170427
  Transmission Date: 20170830
  Serious: Yes (Death, Life-Threatening, Hospitalization, Disabling, Congenital Anomaly, Other)
  Sender: FDA-Public Use
  Company Number: US-TORRENT-00002648

PATIENT
  Age: 4 Day
  Sex: Male

DRUGS (4)
  1. SERTRALINE [Suspect]
     Active Substance: SERTRALINE HYDROCHLORIDE
  2. ESCITALOPRAM [Suspect]
     Active Substance: ESCITALOPRAM OXALATE
  3. PROGESTERONE. [Suspect]
     Active Substance: PROGESTERONE
  4. ONDANSETRON [Suspect]
     Active Substance: ONDANSETRON

REACTIONS (5)
  - Human herpesvirus 6 infection [Fatal]
  - Cardiac failure [Fatal]
  - Multiple organ dysfunction syndrome [Fatal]
  - Cardiomyopathy [Fatal]
  - Foetal exposure during pregnancy [Unknown]
